FAERS Safety Report 5142917-9 (Version None)
Quarter: 2006Q4

REPORT INFORMATION
  Report Type: 
  Country: None (occurrence: None)
  Receive Date: 20061030
  Receipt Date: 20061016
  Transmission Date: 20070319
  Serious: Yes (Hospitalization)
  Sender: FDA-Public Use
  Company Number: E3810-00283-SPO-JP

PATIENT
  Age: 67 Year
  Sex: Male
  Weight: 68 kg

DRUGS (2)
  1. RABEPRAZOLE SODIUM [Suspect]
     Indication: GASTRIC ULCER HAEMORRHAGE
     Dosage: 20 MG, 1 IN 1 D, ORAL
     Route: 048
     Dates: start: 20060916, end: 20060918
  2. SELBEX                      (TEPRENONE) [Suspect]
     Indication: GASTRIC ULCER HAEMORRHAGE
     Dosage: 150 MG, 3 IN 1 D, ORAL
     Route: 048
     Dates: start: 20060916, end: 20060918

REACTIONS (5)
  - BLOOD CREATINE PHOSPHOKINASE INCREASED [None]
  - BLOOD SODIUM DECREASED [None]
  - CHILLS [None]
  - GRANULOCYTOPENIA [None]
  - HEPATIC FUNCTION ABNORMAL [None]
